FAERS Safety Report 19752863 (Version 1)
Quarter: 2021Q3

REPORT INFORMATION
  Report Type: Spontaneous
  Country: FR (occurrence: FR)
  Receive Date: 20210826
  Receipt Date: 20210826
  Transmission Date: 20211014
  Serious: Yes (Life-Threatening, Hospitalization)
  Sender: FDA-Public Use
  Company Number: NVSC2021FR192200

PATIENT
  Age: 53 Year
  Sex: Male

DRUGS (5)
  1. SOLIAN [Suspect]
     Active Substance: AMISULPRIDE
     Indication: SCHIZOPHRENIA
     Dosage: 200 MG, QD (200MG/J) (COMPRIM? S?CABLE)
     Route: 048
     Dates: start: 20210331
  2. NOZINAN [Suspect]
     Active Substance: LEVOMEPROMAZINE
     Indication: SCHIZOPHRENIA
     Dosage: 75 MG, QD (75MG/J) (COMPRIM? PELLICUL? S?CABLE)
     Route: 048
  3. SERESTA [Suspect]
     Active Substance: OXAZEPAM
     Indication: SCHIZOPHRENIA
     Dosage: 100 MG, QD (100MG/J) (COMPRIM? S?CABLE)
     Route: 048
     Dates: start: 20210318
  4. CLOMIPRAMINE [Suspect]
     Active Substance: CLOMIPRAMINE
     Indication: SCHIZOPHRENIA
     Dosage: 50 MG, QD (50MG/J)
     Route: 048
     Dates: start: 20210419
  5. CLOZAPINE. [Suspect]
     Active Substance: CLOZAPINE
     Indication: SCHIZOPHRENIA
     Dosage: 150 MG, 2 FOIS PAR JOUR
     Route: 048

REACTIONS (2)
  - Generalised tonic-clonic seizure [Recovered/Resolved]
  - Hyponatraemia [Recovered/Resolved]

NARRATIVE: CASE EVENT DATE: 20210505
